FAERS Safety Report 24430696 (Version 2)
Quarter: 2025Q4

REPORT INFORMATION
  Report Type: Report from Study
  Country: US (occurrence: US)
  Receive Date: 20241013
  Receipt Date: 20251229
  Transmission Date: 20260117
  Serious: Yes (Other)
  Sender: JOHNSON AND JOHNSON
  Company Number: US-JNJFOC-20241018103

PATIENT
  Age: 67 Year
  Sex: Male

DRUGS (1)
  1. CILTACABTAGENE AUTOLEUCEL [Suspect]
     Active Substance: CILTACABTAGENE AUTOLEUCEL
     Indication: Plasma cell myeloma
     Route: 042

REACTIONS (2)
  - Squamous cell carcinoma of skin [Unknown]
  - Basal cell carcinoma [Unknown]
